FAERS Safety Report 5062838-X (Version None)
Quarter: 2006Q3

REPORT INFORMATION
  Report Type: 
  Country: None (occurrence: None)
  Receive Date: 20060724
  Receipt Date: 20060711
  Transmission Date: 20061208
  Serious: Yes (Life-Threatening, Hospitalization)
  Sender: FDA-Public Use
  Company Number: 200612904GDS

PATIENT
  Age: 58 Year
  Sex: Male
  Weight: 78 kg

DRUGS (1)
  1. NEXAVAR [Suspect]
     Indication: METASTATIC RENAL CELL CARCINOMA
     Dosage: 400 MG, BID, ORAL
     Route: 048

REACTIONS (4)
  - ACUTE RESPIRATORY FAILURE [None]
  - COMA [None]
  - HYPOTENSION [None]
  - SYNCOPE [None]
